FAERS Safety Report 17226574 (Version 1)
Quarter: 2020Q1

REPORT INFORMATION
  Report Type: Spontaneous
  Country: SI (occurrence: SI)
  Receive Date: 20200102
  Receipt Date: 20200102
  Transmission Date: 20200409
  Serious: Yes (Other)
  Sender: FDA-Public Use
  Company Number: SI-ELI_LILLY_AND_COMPANY-SI201912013205

PATIENT
  Age: 58 Year
  Sex: Female

DRUGS (5)
  1. TOLURA [Concomitant]
     Active Substance: TELMISARTAN
     Dosage: 80 MG
  2. ATORIS [Concomitant]
     Active Substance: ATORVASTATIN CALCIUM
     Dosage: 40 MG
  3. TRULICITY [Suspect]
     Active Substance: DULAGLUTIDE
     Indication: DIABETES MELLITUS
     Dosage: 1.5 MG, WEEKLY (1/W)
     Route: 058
     Dates: start: 20170626
  4. PANTOPRAZOL TEVA [Concomitant]
     Active Substance: PANTOPRAZOLE SODIUM
     Dosage: 20 MG
  5. GLICLADA [Concomitant]
     Active Substance: GLICLAZIDE
     Dosage: 1.5 DOSAGE FORM

REACTIONS (1)
  - Sinus node dysfunction [Not Recovered/Not Resolved]

NARRATIVE: CASE EVENT DATE: 201903
